FAERS Safety Report 12845696 (Version 1)
Quarter: 2016Q4

REPORT INFORMATION
  Report Type: Spontaneous
  Country: JP (occurrence: JP)
  Receive Date: 20161013
  Receipt Date: 20161013
  Transmission Date: 20170207
  Serious: Yes (Death, Other)
  Sender: FDA-Public Use
  Company Number: JP-PRESTIUM-2016RN000487

PATIENT

DRUGS (3)
  1. TENOFOVIR DISOPROXIL FUMARATE. [Suspect]
     Active Substance: TENOFOVIR DISOPROXIL FUMARATE
     Indication: HEPATITIS B
     Route: 048
  2. ENTECAVIR. [Concomitant]
     Active Substance: ENTECAVIR
     Dosage: UNK
  3. ZOVIRAX [Suspect]
     Active Substance: ACYCLOVIR
     Indication: HERPES OESOPHAGITIS
     Dosage: UNK
     Route: 048

REACTIONS (10)
  - Hepatic failure [Fatal]
  - Renal impairment [Fatal]
  - Hepatic encephalopathy [Unknown]
  - Abdominal pain upper [Unknown]
  - Ataxia [Unknown]
  - Pathogen resistance [Unknown]
  - Drug effect incomplete [Unknown]
  - Oesophageal disorder [Fatal]
  - Multiple organ dysfunction syndrome [Fatal]
  - Herpes oesophagitis [Unknown]
